FAERS Safety Report 9256705 (Version 1)
Quarter: 2013Q2

REPORT INFORMATION
  Report Type: Spontaneous
  Country: US (occurrence: US)
  Receive Date: 20130426
  Receipt Date: 20130426
  Transmission Date: 20140414
  Serious: No
  Sender: FDA-Public Use
  Company Number: US-BIOGENIDEC-2013BI036320

PATIENT
  Sex: Female

DRUGS (6)
  1. AVONEX [Suspect]
     Indication: MULTIPLE SCLEROSIS
     Route: 030
     Dates: start: 19980824, end: 20020824
  2. AVONEX [Suspect]
     Indication: MULTIPLE SCLEROSIS
     Route: 030
     Dates: start: 20121101, end: 201212
  3. AVONEX [Suspect]
     Indication: MULTIPLE SCLEROSIS
     Route: 030
  4. AMPYRA [Concomitant]
     Indication: GAIT DISTURBANCE
     Dates: start: 2011, end: 2011
  5. LEXAPRO [Concomitant]
     Indication: DEPRESSION
  6. IBUPROFEN [Concomitant]
     Indication: PREMEDICATION

REACTIONS (2)
  - Bipolar disorder [Not Recovered/Not Resolved]
  - Influenza like illness [Recovered/Resolved]
